FAERS Safety Report 19060669 (Version 1)
Quarter: 2021Q1

REPORT INFORMATION
  Report Type: Report from Study
  Country: US (occurrence: US)
  Receive Date: 20210325
  Receipt Date: 20210325
  Transmission Date: 20210420
  Serious: No
  Sender: FDA-Public Use
  Company Number: US-LUNDBECK-DKLU3029796

PATIENT
  Age: 55 Year
  Sex: Female

DRUGS (2)
  1. VYEPTI [Suspect]
     Active Substance: EPTINEZUMAB-JJMR
     Indication: MIGRAINE
     Route: 041
     Dates: start: 20201123
  2. CUTAQUIG [Concomitant]
     Active Substance: HUMAN IMMUNOGLOBULIN G
     Indication: PRODUCT USED FOR UNKNOWN INDICATION
     Route: 065

REACTIONS (6)
  - Intervertebral disc protrusion [Not Recovered/Not Resolved]
  - Anxiety [Not Recovered/Not Resolved]
  - Neck injury [Not Recovered/Not Resolved]
  - Product dose omission issue [Unknown]
  - Product storage error [Unknown]
  - Road traffic accident [Not Recovered/Not Resolved]

NARRATIVE: CASE EVENT DATE: 20210219
